FAERS Safety Report 9067442 (Version 1)
Quarter: 2013Q1

REPORT INFORMATION
  Report Type: Spontaneous
  Country: US (occurrence: US)
  Receive Date: 20130129
  Receipt Date: 20130129
  Transmission Date: 20140127
  Serious: Yes (Death)
  Sender: FDA-Public Use
  Company Number: PHEH2013US002405

PATIENT
  Age: 74 None
  Sex: Male

DRUGS (2)
  1. AFINITOR [Suspect]
     Indication: PROSTATE CANCER
     Dosage: 5 MG, ALTERNATING EVERY OTHER DAY
     Route: 048
  2. AFINITOR [Suspect]
     Dosage: 10 MG, ALTERNATING EVERY OTHER DAY

REACTIONS (1)
  - Death [Fatal]
